FAERS Safety Report 16796863 (Version 1)
Quarter: 2019Q3

REPORT INFORMATION
  Report Type: Spontaneous
  Country: US (occurrence: US)
  Receive Date: 20190722
  Receipt Date: 20190722
  Transmission Date: 20191005
  Serious: Yes (Hospitalization)
  Sender: FDA-Public Use
  Company Number: None

PATIENT
  Sex: Female

DRUGS (10)
  1. TRAMADOL. [Concomitant]
     Active Substance: TRAMADOL
  2. ENBREL [Suspect]
     Active Substance: ETANERCEPT
     Indication: ARTHRITIS
     Route: 058
     Dates: start: 20180110
  3. DOXYCYCL HYC [Concomitant]
  4. PREDNISONE. [Concomitant]
     Active Substance: PREDNISONE
  5. CELECOXIB. [Concomitant]
     Active Substance: CELECOXIB
  6. PREDNISOLONE SUS [Concomitant]
  7. PRED MILD SUS [Concomitant]
  8. ARMOUR THYRO [Concomitant]
  9. CYANOCOBALAM [Concomitant]
     Active Substance: CYANOCOBALAMIN
  10. TRAZODONE [Concomitant]
     Active Substance: TRAZODONE HYDROCHLORIDE

REACTIONS (1)
  - Oral surgery [None]
